FAERS Safety Report 24029658 (Version 1)
Quarter: 2024Q2

REPORT INFORMATION
  Report Type: Spontaneous
  Country: US (occurrence: US)
  Receive Date: 20240628
  Receipt Date: 20240628
  Transmission Date: 20240717
  Serious: Yes (Death, Other)
  Sender: FDA-Public Use
  Company Number: US-AMGEN-USASP2024123618

PATIENT
  Age: 49 Year
  Sex: Male

DRUGS (1)
  1. PREDNISONE [Suspect]
     Active Substance: PREDNISONE
     Indication: Pulmonary mucormycosis
     Dosage: UNK
     Route: 065

REACTIONS (6)
  - Death [Fatal]
  - Pulmonary mucormycosis [Unknown]
  - Mediastinitis [Unknown]
  - Drug ineffective [Unknown]
  - Hyperglycaemia [Unknown]
  - Tracheitis [Unknown]
